FAERS Safety Report 12245728 (Version 1)
Quarter: 2016Q2

REPORT INFORMATION
  Report Type: Spontaneous
  Country: JP (occurrence: JP)
  Receive Date: 20160407
  Receipt Date: 20160407
  Transmission Date: 20160815
  Serious: Yes (Other)
  Sender: FDA-Public Use
  Company Number: JP-SHENZHEN TECHDOW PHARMACEUTICAL CO. LTD-JP-2016TEC0000015

PATIENT

DRUGS (3)
  1. WARFARIN [Suspect]
     Active Substance: WARFARIN
     Indication: ANTICOAGULANT THERAPY
     Dosage: UNK
  2. VITAMIN K [Concomitant]
     Active Substance: PHYTONADIONE
     Indication: PROCOAGULANT THERAPY
     Dosage: UNK
  3. HEPARIN SODIUM INJECTION USP, PRESERVATIVE FREE [Suspect]
     Active Substance: HEPARIN SODIUM
     Indication: ANTICOAGULANT THERAPY
     Dosage: UNK
     Route: 042

REACTIONS (1)
  - Cerebral haematoma [Unknown]
